FAERS Safety Report 6993037-X (Version None)
Quarter: 2010Q3

REPORT INFORMATION
  Report Type: 
  Country: None (occurrence: None)
  Receive Date: 20100917
  Receipt Date: 20100412
  Transmission Date: 20110219
  Serious: No
  Sender: FDA-Public Use
  Company Number: US-ASTRAZENECA-2010SE07591

PATIENT
  Age: 61 Year
  Sex: Female

DRUGS (3)
  1. SEROQUEL XR [Suspect]
     Route: 048
  2. CELEXA [Concomitant]
  3. VALIUM [Concomitant]

REACTIONS (1)
  - GLYCOSYLATED HAEMOGLOBIN DECREASED [None]
